FAERS Safety Report 8507308-9 (Version None)
Quarter: 2012Q3

REPORT INFORMATION
  Report Type: 
  Country: None (occurrence: None)
  Receive Date: 20120712
  Receipt Date: 20120625
  Transmission Date: 20120928
  Serious: No
  Sender: FDA-Public Use
  Company Number: US-TEVA-345247USA

PATIENT
  Age: 18 Year
  Sex: Male

DRUGS (1)
  1. NUVIGIL [Suspect]
     Dosage: UNKNOWN

REACTIONS (1)
  - RASH [None]
